FAERS Safety Report 8440738-2 (Version None)
Quarter: 2012Q2

REPORT INFORMATION
  Report Type: 
  Country: None (occurrence: None)
  Receive Date: 20120615
  Receipt Date: 20120606
  Transmission Date: 20120825
  Serious: Yes (Other)
  Sender: FDA-Public Use
  Company Number: US-ASTRAZENECA-2012SE17103

PATIENT
  Age: 61 Year
  Sex: Female
  Weight: 71.2 kg

DRUGS (18)
  1. XOPENEX HFA [Concomitant]
     Dosage: 2 PUFFS EVERY 4 TO 6 HOURS
     Route: 055
  2. CRESTOR [Suspect]
     Route: 048
  3. PLAVIX [Concomitant]
     Route: 048
  4. OMEGA-3-DHA-EPA-FISH OIL [Concomitant]
     Dosage: 144-216 MG 1 DF TO TIMES A DAY
     Route: 048
  5. NITROGLYCERIN [Concomitant]
     Dosage: AS NEEDED FOR CHEST PAIN
     Route: 060
  6. CRESTOR [Suspect]
     Indication: BLOOD CHOLESTEROL ABNORMAL
     Route: 048
     Dates: start: 20081101
  7. CRESTOR [Suspect]
     Route: 048
     Dates: start: 20091001
  8. CITRACAL+D [Concomitant]
     Dosage: 315-200 MG 4 TABLETS BY MOUTH AS NEEDED
     Route: 048
  9. TRIAMCINOLONE ACETONIDE [Concomitant]
     Dosage: TWICE DAILY ON AFFECTED AREA
     Route: 061
  10. LEUCOVORIN CALCIUM [Concomitant]
     Route: 048
  11. CRESTOR [Suspect]
     Route: 048
     Dates: start: 20100901
  12. FLONASE [Concomitant]
     Dosage: 50 MCG 2 SPRAYS IN EACH NOSTRIL
     Route: 045
  13. PREVACID [Concomitant]
     Route: 048
  14. CELEXA [Concomitant]
     Route: 048
  15. CRESTOR [Suspect]
     Route: 048
  16. ASPIRIN [Concomitant]
     Route: 048
  17. VIVELLE-DOT [Concomitant]
     Dosage: 0.0375 MG/24HR APPLY ONE HALF PATCH EVERY 3 1/2 DAYS
     Route: 062
  18. FLUOROMETHOLONE [Concomitant]
     Dosage: TWICE DAILY AROUND THE EYES
     Route: 047

REACTIONS (19)
  - URINARY INCONTINENCE [None]
  - NON-CARDIAC CHEST PAIN [None]
  - PAIN IN EXTREMITY [None]
  - TACHYCARDIA [None]
  - ABASIA [None]
  - MUSCULOSKELETAL STIFFNESS [None]
  - BURSITIS [None]
  - SCOLIOSIS [None]
  - VITREOUS DETACHMENT [None]
  - HYPOAESTHESIA [None]
  - BURNING SENSATION [None]
  - DRUG INTOLERANCE [None]
  - ASTHENIA [None]
  - THROAT IRRITATION [None]
  - PARAESTHESIA [None]
  - HYPERLIPIDAEMIA [None]
  - ABDOMINAL DISCOMFORT [None]
  - EXTREMITY CONTRACTURE [None]
  - MYALGIA [None]
